FAERS Safety Report 9038568 (Version 1)
Quarter: 2013Q1

REPORT INFORMATION
  Report Type: Spontaneous
  Country: GB (occurrence: GB)
  Receive Date: 20130129
  Receipt Date: 20130129
  Transmission Date: 20140127
  Serious: Yes (Other)
  Sender: FDA-Public Use
  Company Number: GB-MYLANLABS-2013S1001231

PATIENT
  Age: 46 Year
  Sex: Male
  Weight: 75 kg

DRUGS (9)
  1. AMLODIPINE [Suspect]
     Indication: PRODUCT USED FOR UNKNOWN INDICATION
  2. COPEGUS [Interacting]
     Indication: HEPATITIS C
     Route: 048
     Dates: start: 20121001
  3. COPEGUS [Interacting]
     Indication: HEPATITIS C
     Route: 048
  4. COPEGUS [Interacting]
     Indication: HEPATITIS C
     Route: 048
  5. INCIVO [Interacting]
     Indication: HEPATITIS C
     Route: 048
     Dates: start: 20121001
  6. LANTUS [Concomitant]
     Indication: PRODUCT USED FOR UNKNOWN INDICATION
  7. NOVORAPID [Concomitant]
     Indication: DIABETES MELLITUS
  8. PEGASYS [Concomitant]
     Indication: HEPATITIS C
     Route: 058
  9. RAMIPRIL [Concomitant]
     Indication: BLOOD PRESSURE INCREASED

REACTIONS (5)
  - Drug interaction [Recovered/Resolved]
  - Vision blurred [Recovered/Resolved]
  - Haemoglobin decreased [Not Recovered/Not Resolved]
  - Electrocardiogram QT prolonged [Recovered/Resolved]
  - Rash [Recovering/Resolving]
